FAERS Safety Report 4942888-1 (Version None)
Quarter: 2006Q1

REPORT INFORMATION
  Report Type: 
  Country: None (occurrence: None)
  Receive Date: 20060309
  Receipt Date: 20060221
  Transmission Date: 20060701
  Serious: Yes (Hospitalization)
  Sender: FDA-Public Use
  Company Number: 2006-BP-02130RO

PATIENT
  Age: 63 Year
  Sex: Female

DRUGS (3)
  1. METHOTREXATE [Suspect]
     Indication: POLYMYOSITIS
     Dosage: 10 MG PER WEEK (1 IN 1 WK), PO
     Route: 048
  2. PREDNISOLONE [Suspect]
     Indication: POLYMYOSITIS
     Dosage: 5 MG DAILY (5 MG), PO
     Route: 048
  3. FOLIC ACID [Concomitant]

REACTIONS (9)
  - ABSCESS [None]
  - CELLULITIS [None]
  - CHILLS [None]
  - LYMPHADENOPATHY [None]
  - LYMPHANGITIS [None]
  - MALAISE [None]
  - NOCARDIOSIS [None]
  - PYREXIA [None]
  - SKIN INFECTION [None]
